FAERS Safety Report 7599128-7 (Version None)
Quarter: 2011Q3

REPORT INFORMATION
  Report Type: 
  Country: None (occurrence: None)
  Receive Date: 20110711
  Receipt Date: 20110627
  Transmission Date: 20111222
  Serious: Yes (Hospitalization, Other)
  Sender: FDA-Public Use
  Company Number: US-BAYER-2011-001406

PATIENT
  Age: 19 Year
  Sex: Female
  Weight: 58.957 kg

DRUGS (7)
  1. KETOPROFEN [Concomitant]
     Indication: DYSMENORRHOEA
     Dosage: UNK UNK, PRN
     Route: 048
     Dates: start: 20071203
  2. YAZ [Suspect]
     Indication: CONTRACEPTION
     Dosage: UNK
     Route: 048
     Dates: start: 20071101, end: 20071201
  3. YAZ [Suspect]
     Indication: PREMENSTRUAL SYNDROME
  4. ORTHO TRI-CYCLEN [Concomitant]
     Dosage: UNK
     Dates: start: 20071025
  5. YASMIN [Suspect]
     Indication: CONTRACEPTION
     Dosage: UNK
     Route: 048
     Dates: start: 20071101, end: 20071201
  6. YASMIN [Suspect]
     Indication: PREMENSTRUAL SYNDROME
  7. RELAFEN [Concomitant]
     Indication: PAIN
     Dosage: 1000 MG, UNK
     Route: 048
     Dates: start: 20071212

REACTIONS (5)
  - EMOTIONAL DISTRESS [None]
  - DEEP VEIN THROMBOSIS [None]
  - PAIN [None]
  - FEAR [None]
  - INJURY [None]
